FAERS Safety Report 4802423-5 (Version None)
Quarter: 2005Q4

REPORT INFORMATION
  Report Type: 
  Country: None (occurrence: None)
  Receive Date: 20051014
  Receipt Date: 20041003
  Transmission Date: 20060501
  Serious: Yes (Other)
  Sender: FDA-Public Use
  Company Number: 2004075216

PATIENT
  Sex: Female

DRUGS (1)
  1. NEURONTIN [Suspect]
     Indication: ILL-DEFINED DISORDER
     Dosage: ORAL
     Route: 048
     Dates: start: 20010101, end: 20040901

REACTIONS (8)
  - BLOOD PRESSURE INCREASED [None]
  - CONVULSION [None]
  - DEREALISATION [None]
  - FEELING COLD [None]
  - HEART RATE INCREASED [None]
  - HYPERHIDROSIS [None]
  - NEURALGIA [None]
  - PYREXIA [None]
